FAERS Safety Report 15903026 (Version 2)
Quarter: 2019Q1

REPORT INFORMATION
  Report Type: Spontaneous
  Country: GB (occurrence: GB)
  Receive Date: 20190202
  Receipt Date: 20190215
  Transmission Date: 20190417
  Serious: Yes (Other)
  Sender: FDA-Public Use
  Company Number: GB-MICRO LABS LIMITED-ML2019-00132

PATIENT
  Age: 71 Year
  Sex: Male
  Weight: 76.2 kg

DRUGS (3)
  1. CO-AMOXICLAV [Suspect]
     Active Substance: AMOXICILLIN\CLAVULANATE POTASSIUM
     Indication: DEVICE RELATED INFECTION
     Dates: start: 20180818, end: 20180825
  2. CO-AMOXICLAV [Suspect]
     Active Substance: AMOXICILLIN\CLAVULANATE POTASSIUM
     Indication: ORCHITIS
     Dates: start: 20180921
  3. AMOXICILLIN/CLAVULANIC ACID [Suspect]
     Active Substance: AMOXICILLIN\CLAVULANIC ACID
     Indication: ORCHITIS
     Dates: start: 20181015, end: 20181022

REACTIONS (5)
  - Osteoarthritis [Unknown]
  - Pain in extremity [Recovered/Resolved]
  - Pain in extremity [Unknown]
  - Pruritus [Recovered/Resolved]
  - Feeling hot [Recovered/Resolved]

NARRATIVE: CASE EVENT DATE: 20181015
